FAERS Safety Report 16438656 (Version 2)
Quarter: 2019Q2

REPORT INFORMATION
  Report Type: Report from Study
  Country: US (occurrence: US)
  Receive Date: 20190617
  Receipt Date: 20190620
  Transmission Date: 20190711
  Serious: Yes (Hospitalization, Other)
  Sender: FDA-Public Use
  Company Number: US-ROCHE-2333390

PATIENT
  Age: 51 Year
  Sex: Male
  Weight: 152.09 kg

DRUGS (5)
  1. TRAMADOL HCL [Concomitant]
     Active Substance: TRAMADOL HYDROCHLORIDE
     Route: 048
  2. BACLOFEN. [Concomitant]
     Active Substance: BACLOFEN
     Route: 048
  3. ARMODAFINIL. [Concomitant]
     Active Substance: ARMODAFINIL
     Dosage: IN THE MORNING
     Route: 065
  4. OCREVUS [Suspect]
     Active Substance: OCRELIZUMAB
     Indication: RELAPSING MULTIPLE SCLEROSIS
     Route: 042
     Dates: start: 201804
  5. COLESTIPOL [Concomitant]
     Active Substance: COLESTIPOL
     Dosage: 5 PILLS TWICE A DAY
     Route: 048

REACTIONS (5)
  - White blood cell count decreased [Recovering/Resolving]
  - Urinary tract infection [Unknown]
  - Dyspnoea [Recovered/Resolved]
  - Eczema [Recovering/Resolving]
  - Pruritus [Unknown]

NARRATIVE: CASE EVENT DATE: 201902
